FAERS Safety Report 11993401 (Version 1)
Quarter: 2016Q1

REPORT INFORMATION
  Report Type: Spontaneous
  Country: US (occurrence: US)
  Receive Date: 20160203
  Receipt Date: 20160203
  Transmission Date: 20160526
  Serious: Yes (Life-Threatening, Hospitalization)
  Sender: FDA-Public Use
  Company Number: US-WATSON-2016-01115

PATIENT
  Age: 30 Year
  Sex: Female

DRUGS (1)
  1. BUPROPION HYDROCHLORIDE (WATSON LABORATORIES) [Suspect]
     Active Substance: BUPROPION HYDROCHLORIDE
     Indication: PRODUCT USED FOR UNKNOWN INDICATION
     Dosage: UNK; HALF A BOTTLE
     Route: 048

REACTIONS (5)
  - Tachycardia [Recovering/Resolving]
  - Electrocardiogram QT prolonged [Not Recovered/Not Resolved]
  - Overdose [Recovering/Resolving]
  - Seizure [Unknown]
  - Metabolic acidosis [Recovered/Resolved]
